FAERS Safety Report 10397075 (Version 2)
Quarter: 2014Q3

REPORT INFORMATION
  Report Type: Report from Study
  Country: US (occurrence: US)
  Receive Date: 20140820
  Receipt Date: 20140820
  Transmission Date: 20150326
  Serious: Yes (Other)
  Sender: FDA-Public Use
  Company Number: US-SA-2014SA016791

PATIENT
  Age: 44 Year
  Sex: Male

DRUGS (1)
  1. AUBAGIO [Suspect]
     Active Substance: TERIFLUNOMIDE
     Indication: MULTIPLE SCLEROSIS
     Route: 048
     Dates: start: 20131214

REACTIONS (5)
  - Central nervous system lesion [Unknown]
  - Insomnia [Recovering/Resolving]
  - Multiple sclerosis relapse [Unknown]
  - Nausea [Recovering/Resolving]
  - Convulsion [Unknown]

NARRATIVE: CASE EVENT DATE: 2014
